FAERS Safety Report 9475706 (Version 1)
Quarter: 2013Q3

REPORT INFORMATION
  Report Type: Spontaneous
  Country: US (occurrence: None)
  Receive Date: 20130822
  Receipt Date: 20130822
  Transmission Date: 20140515
  Serious: Yes (Hospitalization)
  Sender: FDA-Public Use
  Company Number: None

PATIENT
  Age: 16 Year
  Sex: Female
  Weight: 50.5 kg

DRUGS (2)
  1. CYTARABINE [Suspect]
     Dates: end: 20130706
  2. ETOPOSIDE (VP-16) [Suspect]
     Dates: end: 20130705

REACTIONS (4)
  - Febrile neutropenia [None]
  - Septic shock [None]
  - Convulsion [None]
  - Bacterial test positive [None]
